FAERS Safety Report 5663500-2 (Version None)
Quarter: 2008Q1

REPORT INFORMATION
  Report Type: 
  Country: None (occurrence: None)
  Receive Date: 20080313
  Receipt Date: 20080307
  Transmission Date: 20080703
  Serious: Yes (Hospitalization)
  Sender: FDA-Public Use
  Company Number: US-GENENTECH-257300

PATIENT
  Sex: Female
  Weight: 80.3 kg

DRUGS (8)
  1. BEVACIZUMAB [Suspect]
     Indication: OVARIAN CANCER
     Dosage: 15 MG/KG, QDX21
     Route: 042
     Dates: start: 20060505
  2. OXALIPLATIN [Suspect]
     Indication: OVARIAN CANCER
     Dosage: 85 MG/M2, Q21D
     Route: 042
     Dates: start: 20060505
  3. DOCETAXEL [Suspect]
     Indication: OVARIAN CANCER
     Dosage: 75 MG/M2, Q21D
     Route: 042
     Dates: start: 20060505
  4. GLYBURIDE [Concomitant]
     Indication: DRUG USE FOR UNKNOWN INDICATION
  5. CAPTOPRIL [Concomitant]
     Indication: DRUG USE FOR UNKNOWN INDICATION
  6. OXYCODONE HCL [Concomitant]
     Indication: DRUG USE FOR UNKNOWN INDICATION
  7. HEPARIN FRACTION SODIUM SALT [Concomitant]
     Indication: DRUG USE FOR UNKNOWN INDICATION
  8. METOCLOPRAMIDE [Concomitant]
     Indication: DRUG USE FOR UNKNOWN INDICATION

REACTIONS (1)
  - HYPOGLYCAEMIA [None]
